FAERS Safety Report 14141414 (Version 1)
Quarter: 2017Q4

REPORT INFORMATION
  Report Type: Spontaneous
  Country: US (occurrence: US)
  Receive Date: 20171030
  Receipt Date: 20171030
  Transmission Date: 20180321
  Serious: No
  Sender: FDA-Public Use
  Company Number: US-TEVA-819339ACC

PATIENT
  Sex: Female
  Weight: 73.09 kg

DRUGS (4)
  1. DOXYCYCLINE. [Concomitant]
     Active Substance: DOXYCYCLINE
  2. BETAMETHASONE. [Concomitant]
     Active Substance: BETAMETHASONE
     Indication: ECZEMA
  3. CLOBETASOL 0.05% TOPICAL FOAM [Concomitant]
     Indication: ECZEMA
     Route: 061
  4. PARAGARD T 380A [Suspect]
     Active Substance: COPPER
     Indication: CONTRACEPTION
     Dates: start: 20170815, end: 20170912

REACTIONS (1)
  - Device expulsion [Recovered/Resolved]
